FAERS Safety Report 4374066-1 (Version None)
Quarter: 2004Q2

REPORT INFORMATION
  Report Type: 
  Country: None (occurrence: None)
  Receive Date: 20040607
  Receipt Date: 20040528
  Transmission Date: 20050107
  Serious: Yes (Other)
  Sender: FDA-Public Use
  Company Number: GB-BRISTOL-MYERS SQUIBB COMPANY-12599270

PATIENT
  Age: 69 Year
  Sex: Female

DRUGS (5)
  1. PRAVASTATIN SODIUM [Suspect]
     Indication: HYPERCHOLESTEROLAEMIA
     Route: 048
     Dates: start: 20031117, end: 20040505
  2. RAMIPRIL [Concomitant]
     Indication: CORONARY ARTERY DISEASE
     Route: 048
     Dates: start: 20031117
  3. ISMO [Concomitant]
     Indication: CORONARY ARTERY DISEASE
     Route: 048
     Dates: start: 19950410
  4. DILTIAZEM HCL [Concomitant]
     Indication: HYPERTENSION
     Route: 048
     Dates: start: 20000329
  5. GTN [Concomitant]
     Indication: CORONARY ARTERY DISEASE
     Route: 060
     Dates: start: 19970206

REACTIONS (1)
  - INTERMITTENT CLAUDICATION [None]
